FAERS Safety Report 20855851 (Version 1)
Quarter: 2022Q2

REPORT INFORMATION
  Report Type: Spontaneous
  Country: US (occurrence: None)
  Receive Date: 20220520
  Receipt Date: 20220520
  Transmission Date: 20220720
  Serious: Yes (Hospitalization)
  Sender: FDA-Public Use
  Company Number: None

PATIENT
  Sex: Male

DRUGS (1)
  1. EVEROLIMUS [Suspect]
     Active Substance: EVEROLIMUS
     Indication: Renal cancer
     Dosage: FREQUENCY : DAILY;?
     Route: 048
     Dates: start: 20211223

REACTIONS (7)
  - Viral infection [None]
  - Dehydration [None]
  - Vomiting [None]
  - Fluid intake reduced [None]
  - Hemiplegia [None]
  - Renal failure [None]
  - Blood sodium increased [None]
